APPROVED DRUG PRODUCT: ROSUVASTATIN CALCIUM
Active Ingredient: ROSUVASTATIN CALCIUM
Strength: EQ 20MG BASE
Dosage Form/Route: TABLET;ORAL
Application: A079168 | Product #003 | TE Code: AB
Applicant: CHARTWELL RX SCIENCES LLC
Approved: Jul 19, 2016 | RLD: No | RS: No | Type: RX